FAERS Safety Report 17879582 (Version 1)
Quarter: 2020Q2

REPORT INFORMATION
  Report Type: Spontaneous
  Country: US (occurrence: US)
  Receive Date: 20200610
  Receipt Date: 20200610
  Transmission Date: 20200714
  Serious: No
  Sender: FDA-Public Use
  Company Number: US-MYLANLABS-2020M1053258

PATIENT
  Sex: Male

DRUGS (1)
  1. TRAVOPROST OPHTHALMIC SOLUTION USP [Suspect]
     Active Substance: TRAVOPROST
     Indication: PRODUCT USED FOR UNKNOWN INDICATION
     Dosage: ONE DROP EACH EYE NIGHTLY
     Route: 047

REACTIONS (4)
  - Product packaging issue [Unknown]
  - Device difficult to use [Not Recovered/Not Resolved]
  - Product dispensing issue [Not Recovered/Not Resolved]
  - Incorrect dose administered [Not Recovered/Not Resolved]
